FAERS Safety Report 7638861-5 (Version None)
Quarter: 2011Q3

REPORT INFORMATION
  Report Type: 
  Country: None (occurrence: None)
  Receive Date: 20110727
  Receipt Date: 20110721
  Transmission Date: 20111222
  Serious: Yes (Other)
  Sender: FDA-Public Use
  Company Number: BR-PFIZER INC-2011104606

PATIENT
  Age: 34 Year
  Sex: Male
  Weight: 72 kg

DRUGS (2)
  1. ALPRAZOLAM [Suspect]
     Indication: PANIC DISORDER
     Dosage: 0.25 MG (HALF TABLET OF 0.5MG), 1X/DAY
     Route: 048
     Dates: start: 20100101, end: 20110301
  2. ALPRAZOLAM [Suspect]
     Dosage: UNK
     Dates: start: 20100101, end: 20110101

REACTIONS (11)
  - DIZZINESS [None]
  - MALAISE [None]
  - RETCHING [None]
  - HYPERHIDROSIS [None]
  - TACHYCARDIA [None]
  - HEART RATE INCREASED [None]
  - ABDOMINAL PAIN [None]
  - DRY MOUTH [None]
  - FATIGUE [None]
  - CHEST PAIN [None]
  - ASTHENIA [None]
